FAERS Safety Report 10665282 (Version 1)
Quarter: 2014Q4

REPORT INFORMATION
  Report Type: Spontaneous
  Country: US (occurrence: None)
  Receive Date: 20141208
  Receipt Date: 20141208
  Transmission Date: 20150529
  Serious: No
  Sender: FDA-Public Use
  Company Number: 2014TUS005650

PATIENT
  Age: 26 Year
  Sex: Female
  Weight: 104.3 kg

DRUGS (16)
  1. BRINTELLIX [Suspect]
     Active Substance: VORTIOXETINE HYDROBROMIDE
     Indication: ANXIETY
     Route: 048
     Dates: start: 201401, end: 2014
  2. ONDANSETRON HCL (ONDANSETRON HYDROCHLORIDE) [Concomitant]
     Active Substance: ONDANSETRON HYDROCHLORIDE
  3. ESCITALOPRAM [Concomitant]
     Active Substance: ESCITALOPRAM OXALATE
  4. CLARITIN [Concomitant]
     Active Substance: LORATADINE
  5. AMOXIL /00249601/ (AMOXICILLIN) [Concomitant]
  6. UNKNOWN MEDICATIONS (ALL OTHER THERAPEUTIC PRODUCTS) [Concomitant]
  7. BRINTELLIX [Suspect]
     Active Substance: VORTIOXETINE HYDROBROMIDE
     Indication: DEPRESSION
     Route: 048
     Dates: start: 201401, end: 2014
  8. VITAMINS /00067501/ (ASCORBIC ACID, ERGOCALCIFEROL, NICOTINAMIDE, RETINOL, RIBOFLAVIN, THIAMINE HYDROCHLORIDE) [Concomitant]
  9. CARAFATE (SUCRALFATE) [Concomitant]
  10. CONCERTA (METHYLPHENIDATE HYDROCHLORIDE) [Concomitant]
  11. TYLENOL /00020001/ (PARACETAMOL) [Concomitant]
  12. ZOFRAN /00955301/ (ONDANSETRON) [Concomitant]
  13. BENADRYL /00000402/ (DIPHENHYDRAMINE HYDROCHLORIDE) [Concomitant]
  14. METHYLPHENIDATE [Concomitant]
     Active Substance: METHYLPHENIDATE
  15. VALACYCLOVIR HCL PHARMA PAC (VALACICLOVIR HYDROCHLORIDE) [Concomitant]
  16. DIFLUCAN [Concomitant]
     Active Substance: FLUCONAZOLE

REACTIONS (19)
  - Abdominal pain upper [None]
  - Pharyngitis [None]
  - Headache [None]
  - White blood cell count increased [None]
  - Cellulitis [None]
  - Oropharyngeal pain [None]
  - Dysphagia [None]
  - Fatigue [None]
  - Sleep disorder [None]
  - Diarrhoea [None]
  - Reflux gastritis [None]
  - Odynophagia [None]
  - Nausea [None]
  - Herpes zoster [None]
  - Vomiting [None]
  - Condition aggravated [None]
  - Depression [None]
  - Urticaria [None]
  - Pyrexia [None]

NARRATIVE: CASE EVENT DATE: 20140523
